FAERS Safety Report 16804523 (Version 1)
Quarter: 2019Q3

REPORT INFORMATION
  Report Type: Spontaneous
  Country: US (occurrence: US)
  Receive Date: 20190723
  Receipt Date: 20190723
  Transmission Date: 20191005
  Serious: No
  Sender: FDA-Public Use
  Company Number: None

PATIENT
  Age: 85 Year
  Sex: Male
  Weight: 97 kg

DRUGS (20)
  1. BETHANECHOL 25MG ORAL TABLET, [Concomitant]
  2. FLECAINIDE 100 MG ORAL TABLET [Concomitant]
  3. ASPIRIN 81 MG ORAL TABLET [Concomitant]
  4. NO DRUG NAME [Concomitant]
  5. FLOMAX, 0.4MG, ORAL, [Concomitant]
  6. NO DRUG NAME [Concomitant]
  7. VITAMIN B12 [Concomitant]
     Active Substance: CYANOCOBALAMIN
  8. LEVOTHYROXINE 75 MCG [Concomitant]
  9. FISH OIL 1000 MG ORAL CAPSULE, [Concomitant]
  10. CO-Q10 200 MG ORAL CAPSULE [Concomitant]
  11. METHYLCOBALAMIN 3000 MCG SUBLINGUAL TABLET [Concomitant]
  12. PRAVASTATIN 20 MG [Concomitant]
     Active Substance: PRAVASTATIN
  13. ENTACAPONE 200 MG ORAL TABLET [Concomitant]
  14. VITAMIN D3 2000 INTL UNITS ORAL CAPSULE [Concomitant]
  15. CARBIDOPA-LEVODOPA 25 MG-250 MG ORAL TABLET [Concomitant]
  16. FINESTERIDE 5 MG ORAL TABLET [Concomitant]
  17. ELIQUIS 2.5 MG ORAL TABLET [Concomitant]
  18. ENTACAPONE. [Suspect]
     Active Substance: ENTACAPONE
     Indication: MENTAL STATUS CHANGES
  19. LASIX 20 MG ORAL TABLET [Concomitant]
  20. MIDODRINE 5 MG ORAL TABLET [Concomitant]

REACTIONS (1)
  - Mental status changes [None]
